FAERS Safety Report 23511173 (Version 2)
Quarter: 2024Q1

REPORT INFORMATION
  Report Type: Spontaneous
  Country: KH (occurrence: KH)
  Receive Date: 20240212
  Receipt Date: 20240315
  Transmission Date: 20240410
  Serious: Yes (Death, Other)
  Sender: FDA-Public Use
  Company Number: KH-002147023-NVSC2024KH029152

PATIENT
  Sex: Male

DRUGS (1)
  1. TASIGNA [Suspect]
     Active Substance: NILOTINIB
     Indication: Chronic myeloid leukaemia
     Dosage: 400 MG, BID
     Route: 065

REACTIONS (4)
  - Abdominal distension [Fatal]
  - Lung neoplasm malignant [Fatal]
  - Pleural effusion [Fatal]
  - Respiratory distress [Fatal]
